FAERS Safety Report 25012933 (Version 2)
Quarter: 2025Q1

REPORT INFORMATION
  Report Type: Spontaneous
  Country: PT (occurrence: PT)
  Receive Date: 20250226
  Receipt Date: 20250325
  Transmission Date: 20250409
  Serious: Yes (Hospitalization, Other)
  Sender: CSL BEHRING
  Company Number: PT-BEH-2025196798

PATIENT
  Sex: Female

DRUGS (1)
  1. VELTASSA [Suspect]
     Active Substance: PATIROMER
     Indication: Renin-angiotensin system inhibition
     Route: 065
     Dates: start: 20220309, end: 20230118

REACTIONS (3)
  - Acute kidney injury [Recovered/Resolved with Sequelae]
  - End stage renal disease [Not Recovered/Not Resolved]
  - Haemodialysis [Not Recovered/Not Resolved]

NARRATIVE: CASE EVENT DATE: 20221103
